FAERS Safety Report 5712086-2 (Version None)
Quarter: 2008Q2

REPORT INFORMATION
  Report Type: 
  Country: None (occurrence: None)
  Receive Date: 20080418
  Receipt Date: 20080414
  Transmission Date: 20081010
  Serious: Yes (Death, Other)
  Sender: FDA-Public Use
  Company Number: CLOF-1000117

PATIENT
  Age: 14 Year
  Sex: Female
  Weight: 45 kg

DRUGS (6)
  1. CLOFARABINE     SOLUTION FOR INFUSION [Suspect]
     Indication: ACUTE LYMPHOCYTIC LEUKAEMIA
     Dosage: 58 MG, QDX5, INTRAVENOUS
     Route: 042
     Dates: start: 20080322, end: 20080326
  2. CYTARABINE [Suspect]
     Indication: ACUTE LYMPHOCYTIC LEUKAEMIA
     Dosage: 1450 MG, QDX5, INTRAVENOUS
     Route: 042
     Dates: start: 20080321, end: 20080325
  3. ALLOPURINOL [Concomitant]
  4. CETIRIZINE HCL [Concomitant]
  5. DIFLUCAN [Concomitant]
  6. PROTONIX [Concomitant]

REACTIONS (4)
  - CARDIAC ARREST [None]
  - RENAL FAILURE [None]
  - RENAL MASS [None]
  - RESPIRATORY FAILURE [None]
